FAERS Safety Report 5355398-7 (Version None)
Quarter: 2007Q2

REPORT INFORMATION
  Report Type: 
  Country: None (occurrence: None)
  Receive Date: 20070525
  Receipt Date: 20070315
  Transmission Date: 20071010
  Serious: Yes (Other)
  Sender: FDA-Public Use
  Company Number: WAES 0703USA03578

PATIENT

DRUGS (2)
  1. VYTORIN [Suspect]
     Dosage: PO
     Route: 048
     Dates: start: 20050101
  2. FOSAMAX [Concomitant]

REACTIONS (2)
  - HEPATIC ENZYME INCREASED [None]
  - LUNG NEOPLASM MALIGNANT [None]
